FAERS Safety Report 4903402-X (Version None)
Quarter: 2006Q1

REPORT INFORMATION
  Report Type: 
  Country: None (occurrence: None)
  Receive Date: 20060203
  Receipt Date: 20060131
  Transmission Date: 20060701
  Serious: Yes (Hospitalization, Disabling, Other)
  Sender: FDA-Public Use
  Company Number: THQ2005A00887

PATIENT
  Age: 42 Year
  Sex: Female

DRUGS (1)
  1. LEUPROLIDE ACETATE [Suspect]
     Indication: UTERINE LEIOMYOMA
     Dosage: 2 INJECTIONS
     Dates: start: 20031201

REACTIONS (4)
  - BLINDNESS [None]
  - HEADACHE [None]
  - INFLUENZA LIKE ILLNESS [None]
  - INTRACRANIAL PRESSURE INCREASED [None]
